FAERS Safety Report 14927164 (Version 4)
Quarter: 2018Q2

REPORT INFORMATION
  Report Type: Report from Study
  Country: US (occurrence: US)
  Receive Date: 20180523
  Receipt Date: 20180614
  Transmission Date: 20180711
  Serious: Yes (Death, Hospitalization, Other)
  Sender: FDA-Public Use
  Company Number: US-B.I. PHARMACEUTICALS,INC./RIDGEFIELD-2018-BI-021461

PATIENT
  Age: 78 Year
  Sex: Female

DRUGS (4)
  1. OFEV [Suspect]
     Active Substance: NINTEDANIB
     Indication: IDIOPATHIC PULMONARY FIBROSIS
     Route: 048
  2. OFEV [Suspect]
     Active Substance: NINTEDANIB
     Route: 048
     Dates: start: 20180216
  3. OFEV [Suspect]
     Active Substance: NINTEDANIB
     Route: 048
     Dates: start: 20180308, end: 20180405
  4. OFEV [Suspect]
     Active Substance: NINTEDANIB
     Route: 065
     Dates: start: 201803, end: 2018

REACTIONS (6)
  - Vasculitis [Not Recovered/Not Resolved]
  - Renal failure [Not Recovered/Not Resolved]
  - Pulmonary haemorrhage [Unknown]
  - Cardio-respiratory arrest [Fatal]
  - Nephrectomy [Unknown]
  - Diarrhoea [Recovered/Resolved]

NARRATIVE: CASE EVENT DATE: 2018
